FAERS Safety Report 17162047 (Version 1)
Quarter: 2019Q4

REPORT INFORMATION
  Report Type: Spontaneous
  Country: US (occurrence: US)
  Receive Date: 20191122
  Receipt Date: 20191122
  Transmission Date: 20200122
  Serious: No
  Sender: FDA-Public Use
  Company Number: None

PATIENT
  Sex: Male

DRUGS (2)
  1. REPATHA [Suspect]
     Active Substance: EVOLOCUMAB
     Indication: PRODUCT USED FOR UNKNOWN INDICATION
     Route: 058
     Dates: start: 20190926
  2. REPATHA [Suspect]
     Active Substance: EVOLOCUMAB
     Indication: HYPERTENSION
     Route: 058
     Dates: start: 20190926

REACTIONS (1)
  - Memory impairment [None]
